FAERS Safety Report 10362155 (Version 4)
Quarter: 2014Q3

REPORT INFORMATION
  Report Type: Report from Study
  Country: DE (occurrence: DE)
  Receive Date: 20140805
  Receipt Date: 20140929
  Transmission Date: 20150326
  Serious: Yes (Hospitalization)
  Sender: FDA-Public Use
  Company Number: DE-JNJFOC-20140701389

PATIENT
  Age: 54 Year
  Sex: Male
  Weight: 105 kg

DRUGS (14)
  1. TOREM [Concomitant]
     Active Substance: TORSEMIDE
     Indication: TACHYCARDIA
     Route: 065
     Dates: start: 20120606
  2. BISOPROLOL [Concomitant]
     Active Substance: BISOPROLOL
     Indication: HYPOTENSION
     Route: 065
     Dates: start: 20120323
  3. ALDACTONE [Concomitant]
     Active Substance: SPIRONOLACTONE
     Indication: HYPOTENSION
     Route: 065
     Dates: start: 20120606
  4. MARCUMAR [Concomitant]
     Active Substance: PHENPROCOUMON
     Indication: HYPOTENSION
     Dosage: DOSE: ACCORDING TO NEEDS
     Route: 065
     Dates: start: 20050101
  5. DELIX PLUS [Concomitant]
     Active Substance: HYDROCHLOROTHIAZIDE\RAMIPRIL
     Indication: TACHYCARDIA
     Route: 065
     Dates: start: 20120606
  6. ALDACTONE [Concomitant]
     Active Substance: SPIRONOLACTONE
     Indication: TACHYCARDIA
     Route: 065
     Dates: start: 20120606
  7. TOREM [Concomitant]
     Active Substance: TORSEMIDE
     Indication: HYPOTENSION
     Route: 065
     Dates: start: 20120606
  8. MARCUMAR [Concomitant]
     Active Substance: PHENPROCOUMON
     Indication: TACHYCARDIA
     Dosage: DOSE: ACCORDING TO NEEDS
     Route: 065
     Dates: start: 20050101
  9. ABIRATERONE ACETATE [Suspect]
     Active Substance: ABIRATERONE ACETATE
     Indication: PROSTATE CANCER METASTATIC
     Route: 048
     Dates: start: 20140724
  10. PREDNISONE. [Suspect]
     Active Substance: PREDNISONE
     Indication: PROSTATE CANCER METASTATIC
     Route: 065
     Dates: start: 20140625
  11. PANTOZOL [Concomitant]
     Active Substance: PANTOPRAZOLE SODIUM
     Indication: GASTROINTESTINAL DISORDER THERAPY
     Route: 065
     Dates: start: 20120127
  12. BISOPROLOL [Concomitant]
     Active Substance: BISOPROLOL
     Indication: TACHYCARDIA
     Route: 065
     Dates: start: 20120323
  13. ABIRATERONE ACETATE [Suspect]
     Active Substance: ABIRATERONE ACETATE
     Indication: PROSTATE CANCER METASTATIC
     Route: 048
     Dates: start: 20140625, end: 20140723
  14. DELIX PLUS [Concomitant]
     Active Substance: HYDROCHLOROTHIAZIDE\RAMIPRIL
     Indication: HYPOTENSION
     Route: 065
     Dates: start: 20120606

REACTIONS (4)
  - Back pain [Recovered/Resolved]
  - Gamma-glutamyltransferase increased [Unknown]
  - Renal disorder [Recovered/Resolved]
  - Alanine aminotransferase increased [Unknown]

NARRATIVE: CASE EVENT DATE: 2014
